FAERS Safety Report 23529146 (Version 2)
Quarter: 2024Q1

REPORT INFORMATION
  Report Type: Spontaneous
  Country: IT (occurrence: IT)
  Receive Date: 20240216
  Receipt Date: 20240305
  Transmission Date: 20240409
  Serious: Yes (Other)
  Sender: FDA-Public Use
  Company Number: IT-002147023-NVSC2024IT020045

PATIENT
  Age: 82 Month
  Sex: Male

DRUGS (4)
  1. CYCLOPHOSPHAMIDE [Suspect]
     Active Substance: CYCLOPHOSPHAMIDE
     Indication: Neuroblastoma
     Dosage: 250 MG/M2, QD, IN WEEK 2 OF 28-DAY SCHEDULE
     Route: 065
     Dates: start: 2022, end: 2022
  2. TOPOTECAN [Suspect]
     Active Substance: TOPOTECAN HYDROCHLORIDE
     Indication: Neuroblastoma
     Dosage: 0.75 MG/M2, QD, IN WEEK 2 OF 28-DAY SCHEDULE
     Route: 065
     Dates: start: 2022, end: 2022
  3. VENETOCLAX [Suspect]
     Active Substance: VENETOCLAX
     Indication: Neuroblastoma
     Dosage: 200 MG, DAY 1
     Route: 048
     Dates: start: 2022, end: 2022
  4. VENETOCLAX [Suspect]
     Active Substance: VENETOCLAX
     Dosage: 400 MG, DAY 2
     Route: 048
     Dates: start: 2022, end: 2022

REACTIONS (7)
  - Neutropenia [Recovered/Resolved]
  - Thrombocytopenia [Recovered/Resolved]
  - Febrile neutropenia [Recovered/Resolved]
  - Anaemia [Recovered/Resolved]
  - Off label use [Unknown]
  - Product use issue [Unknown]
  - Product use in unapproved indication [Unknown]

NARRATIVE: CASE EVENT DATE: 20220101
